FAERS Safety Report 21095694 (Version 2)
Quarter: 2022Q3

REPORT INFORMATION
  Report Type: Spontaneous
  Country: US (occurrence: US)
  Receive Date: 20220718
  Receipt Date: 20220812
  Transmission Date: 20221026
  Serious: Yes (Other)
  Sender: FDA-Public Use
  Company Number: US-BAYER-2022A098929

PATIENT
  Age: 25 Year
  Sex: Female
  Weight: 120 kg

DRUGS (1)
  1. MIRENA [Suspect]
     Active Substance: LEVONORGESTREL
     Indication: Intrauterine contraception
     Dosage: 20?G/DAY
     Route: 015
     Dates: start: 20220621, end: 20220710

REACTIONS (5)
  - Genital haemorrhage [None]
  - Device expulsion [Recovered/Resolved]
  - Abdominal pain lower [None]
  - Medical device site discomfort [None]
  - Intentional medical device removal by patient [None]

NARRATIVE: CASE EVENT DATE: 20220710
